FAERS Safety Report 5143918-7 (Version None)
Quarter: 2006Q4

REPORT INFORMATION
  Report Type: 
  Country: None (occurrence: None)
  Receive Date: 20061106
  Receipt Date: 20061023
  Transmission Date: 20070319
  Serious: Yes (Other)
  Sender: FDA-Public Use
  Company Number: 2006AC01937

PATIENT
  Age: 564 Month
  Sex: Female

DRUGS (2)
  1. ARIMIDEX [Suspect]
     Indication: BREAST CANCER
     Route: 048
     Dates: start: 20060701
  2. ARIMIDEX [Suspect]
     Dosage: DOSE INCREASED
     Dates: start: 20060101

REACTIONS (1)
  - CARPAL TUNNEL SYNDROME [None]
